FAERS Safety Report 4371303-4 (Version None)
Quarter: 2004Q2

REPORT INFORMATION
  Report Type: 
  Country: None (occurrence: None)
  Receive Date: 20040603
  Receipt Date: 20040517
  Transmission Date: 20050107
  Serious: Yes (Hospitalization)
  Sender: FDA-Public Use
  Company Number: US-2004-025511

PATIENT
  Age: 57 Year
  Sex: Male
  Weight: 79.4 kg

DRUGS (6)
  1. FINACEA [Suspect]
     Indication: ROSACEA
     Dosage: 1X/DAY, TOPICAL
     Route: 061
     Dates: start: 20030801, end: 20040402
  2. FINACEA [Suspect]
     Indication: ROSACEA
     Dosage: 1X/DAY, TOPICAL
     Route: 061
     Dates: start: 20040417, end: 20040511
  3. BEXTRA [Concomitant]
  4. NORVASC [Concomitant]
  5. ATENOLOL [Concomitant]
  6. NEXIUM [Concomitant]

REACTIONS (3)
  - NEPHROLITHIASIS [None]
  - RENAL FAILURE ACUTE [None]
  - RENAL TUBULAR NECROSIS [None]
